FAERS Safety Report 24279738 (Version 1)
Quarter: 2024Q3

REPORT INFORMATION
  Report Type: Spontaneous
  Country: GB (occurrence: GB)
  Receive Date: 20240904
  Receipt Date: 20240904
  Transmission Date: 20241017
  Serious: Yes (Other)
  Sender: NOVO NORDISK
  Company Number: None

PATIENT
  Age: 42 Year
  Sex: Female
  Weight: 89 kg

DRUGS (2)
  1. WEGOVY [Suspect]
     Active Substance: SEMAGLUTIDE
     Dosage: 5MG (INCREASED )
  2. WEGOVY [Suspect]
     Active Substance: SEMAGLUTIDE
     Indication: Product used for unknown indication
     Dosage: 2.5 MG

REACTIONS (4)
  - Hypoaesthesia [Not Recovered/Not Resolved]
  - Paraesthesia [Unknown]
  - Fatigue [Unknown]
  - Nausea [Unknown]
